FAERS Safety Report 9703900 (Version 2)
Quarter: 2013Q4

REPORT INFORMATION
  Report Type: Spontaneous
  Country: CA (occurrence: CA)
  Receive Date: 20131122
  Receipt Date: 20131122
  Transmission Date: 20140711
  Serious: Yes (Other)
  Sender: FDA-Public Use
  Company Number: CA-ELI_LILLY_AND_COMPANY-CA201305001993

PATIENT
  Age: 27 Year
  Sex: Female

DRUGS (1)
  1. PROZAC [Suspect]
     Indication: PRODUCT USED FOR UNKNOWN INDICATION
     Dosage: 20 MG, QD
     Route: 048
     Dates: start: 20121104

REACTIONS (5)
  - Photophobia [Unknown]
  - Hypoaesthesia [Unknown]
  - Feeling drunk [Unknown]
  - Dizziness [Unknown]
  - Vomiting [Unknown]
